FAERS Safety Report 4627740-3 (Version None)
Quarter: 2005Q2

REPORT INFORMATION
  Report Type: 
  Country: None (occurrence: None)
  Receive Date: 20050401
  Receipt Date: 20040205
  Transmission Date: 20051028
  Serious: No
  Sender: FDA-Public Use
  Company Number: 7385

PATIENT
  Age: 64 Year
  Sex: Male

DRUGS (2)
  1. LEUCOVORIN CALCIUM [Suspect]
     Indication: RECTAL CANCER
     Dosage: 75 MG PO
     Route: 048
     Dates: start: 20031226, end: 20040120
  2. TEGAFUR URACIL [Suspect]
     Indication: LARGE INTESTINE CARCINOMA
     Dosage: 300 MG
     Dates: start: 20031226, end: 20040120

REACTIONS (4)
  - DIARRHOEA [None]
  - HEPATIC FUNCTION ABNORMAL [None]
  - NAUSEA [None]
  - VOMITING [None]
